FAERS Safety Report 13660759 (Version 1)
Quarter: 2017Q2

REPORT INFORMATION
  Report Type: Spontaneous
  Country: US (occurrence: US)
  Receive Date: 20170616
  Receipt Date: 20170616
  Transmission Date: 20170830
  Serious: No
  Sender: FDA-Public Use
  Company Number: US-TARO-2017TAR00063

PATIENT
  Sex: Male

DRUGS (1)
  1. NORTRIPTYLINE HCL CAPSULES 25 MG [Suspect]
     Active Substance: NORTRIPTYLINE HYDROCHLORIDE
     Indication: MIGRAINE
     Dosage: UNK
     Dates: start: 1991

REACTIONS (4)
  - Dysarthria [Unknown]
  - Off label use [Unknown]
  - Dry mouth [Unknown]
  - Blood pressure fluctuation [Unknown]
